FAERS Safety Report 7555092-8 (Version None)
Quarter: 2011Q2

REPORT INFORMATION
  Report Type: 
  Country: None (occurrence: None)
  Receive Date: 20110617
  Receipt Date: 20110615
  Transmission Date: 20111010
  Serious: No
  Sender: FDA-Public Use
  Company Number: US-PFIZER INC-2011132276

PATIENT
  Sex: Female

DRUGS (3)
  1. CHANTIX [Suspect]
     Dosage: 2 MG, 2X/DAY
  2. CHANTIX [Suspect]
     Dosage: 4 MG, 2X/DAY
  3. CHANTIX [Suspect]
     Dosage: UNK

REACTIONS (4)
  - HEADACHE [None]
  - DYSGRAPHIA [None]
  - DYSGEUSIA [None]
  - PAIN [None]
